FAERS Safety Report 23991647 (Version 1)
Quarter: 2024Q2

REPORT INFORMATION
  Report Type: Spontaneous
  Country: GB (occurrence: GB)
  Receive Date: 20240619
  Receipt Date: 20240619
  Transmission Date: 20240717
  Serious: Yes (Other)
  Sender: FDA-Public Use
  Company Number: GB-B.Braun Medical Inc.-2158307

PATIENT
  Age: 48 Year
  Sex: Female
  Weight: 173 kg

DRUGS (16)
  1. METRONIDAZOLE [Suspect]
     Active Substance: METRONIDAZOLE
     Indication: Post procedural infection
  2. Accord-UK Ferrous Sulfate [Concomitant]
  3. ENOXAPARIN SODIUM [Concomitant]
     Active Substance: ENOXAPARIN SODIUM
  4. TRANEXAMIC ACID [Concomitant]
     Active Substance: TRANEXAMIC ACID
  5. VITAMIN D [Concomitant]
     Active Substance: VITAMIN D NOS
  6. PROGESTERONE [Concomitant]
     Active Substance: PROGESTERONE
  7. PROVERA [Concomitant]
     Active Substance: MEDROXYPROGESTERONE ACETATE
  8. NORETHINDRONE [Concomitant]
     Active Substance: NORETHINDRONE
  9. XAILIN NIGHT [Concomitant]
  10. Evolve ha [Concomitant]
  11. VENTOLIN [Concomitant]
     Active Substance: ALBUTEROL SULFATE
  12. Clenil modulate [Concomitant]
  13. DICLOFENAC [Concomitant]
     Active Substance: DICLOFENAC
  14. Evorel 100 [Concomitant]
  15. MOVICOL [Concomitant]
     Active Substance: POLYETHYLENE GLYCOL 3350\POTASSIUM CHLORIDE\SODIUM BICARBONATE\SODIUM CHLORIDE
  16. CODEINE [Concomitant]
     Active Substance: CODEINE

REACTIONS (7)
  - Headache [Recovering/Resolving]
  - Dental paraesthesia [Recovering/Resolving]
  - Swelling [Recovering/Resolving]
  - Ear swelling [Recovering/Resolving]
  - Pruritus [Recovering/Resolving]
  - Urticaria [Recovering/Resolving]
  - Fatigue [Recovering/Resolving]
